FAERS Safety Report 19722078 (Version 3)
Quarter: 2022Q3

REPORT INFORMATION
  Report Type: Spontaneous
  Country: US (occurrence: US)
  Receive Date: 20210819
  Receipt Date: 20220803
  Transmission Date: 20221027
  Serious: Yes (Other)
  Sender: FDA-Public Use
  Company Number: US-PERRIGO-21US010923

PATIENT
  Age: 53 Year
  Sex: Female
  Weight: 61.224 kg

DRUGS (9)
  1. PIPERONYL BUTOXIDE\PYRETHRUM EXTRACT [Suspect]
     Active Substance: PIPERONYL BUTOXIDE\PYRETHRUM EXTRACT
     Indication: Lice infestation
     Dosage: 1 APPLICATION, SINGLE
     Route: 061
     Dates: start: 20210804, end: 20210804
  2. PIPERONYL BUTOXIDE\PYRETHRUM EXTRACT [Suspect]
     Active Substance: PIPERONYL BUTOXIDE\PYRETHRUM EXTRACT
     Indication: Accidental exposure to product
     Dosage: UNKNOWN, SINGLE
     Route: 047
     Dates: start: 20210804, end: 20210804
  3. LISINOPRIL AND HYDROCHLOROTHIAZIDE [Concomitant]
     Active Substance: HYDROCHLOROTHIAZIDE\LISINOPRIL
     Indication: Hypertension
     Dosage: 20/25
     Route: 065
     Dates: start: 2011
  4. ALENDRONATE [Concomitant]
     Active Substance: ALENDRONATE SODIUM
     Indication: Product used for unknown indication
     Dosage: 70 MG, UNK
     Route: 065
  5. ALPRAZOLAM [Concomitant]
     Active Substance: ALPRAZOLAM
     Indication: Product used for unknown indication
     Dosage: 1 MG, UNK
     Route: 065
  6. BUSPIRONE [Concomitant]
     Active Substance: BUSPIRONE HYDROCHLORIDE
     Indication: Product used for unknown indication
     Dosage: 10 MG, UNK
     Route: 065
  7. REXULTI [Concomitant]
     Active Substance: BREXPIPRAZOLE
     Indication: Product used for unknown indication
     Dosage: 1 MG, UNK
     Route: 065
  8. TRAZODONE [Concomitant]
     Active Substance: TRAZODONE HYDROCHLORIDE
     Indication: Product used for unknown indication
     Dosage: 300 MG, UNK
     Route: 065
  9. RESTASIS [Suspect]
     Active Substance: CYCLOSPORINE
     Indication: Product used for unknown indication
     Dosage: 1 GTT OU, BID
     Route: 047
     Dates: start: 20211022

REACTIONS (10)
  - Blindness transient [Recovered/Resolved]
  - Chemical burns of eye [Not Recovered/Not Resolved]
  - Accidental exposure to product [Recovered/Resolved]
  - Vision blurred [Not Recovered/Not Resolved]
  - Ocular hyperaemia [Recovered/Resolved]
  - Eye swelling [Recovered/Resolved]
  - Swelling face [Recovered/Resolved]
  - Eye infection [Not Recovered/Not Resolved]
  - Eye swelling [Recovered/Resolved]
  - Swelling face [Recovered/Resolved]

NARRATIVE: CASE EVENT DATE: 20210804
